FAERS Safety Report 10358545 (Version 1)
Quarter: 2014Q3

REPORT INFORMATION
  Report Type: Spontaneous
  Country: US (occurrence: US)
  Receive Date: 20140802
  Receipt Date: 20140802
  Transmission Date: 20150326
  Serious: Yes (Other)
  Sender: FDA-Public Use
  Company Number: US-AMGEN-USASP2014057082

PATIENT
  Sex: Female
  Weight: 68.93 kg

DRUGS (1)
  1. PROLIA [Suspect]
     Active Substance: DENOSUMAB
     Indication: OSTEOPOROSIS POSTMENOPAUSAL
     Route: 065

REACTIONS (12)
  - Depression [Unknown]
  - Menopausal symptoms [Unknown]
  - Insomnia [Unknown]
  - Hypertension [Unknown]
  - Angina pectoris [Unknown]
  - Type 1 diabetes mellitus [Unknown]
  - Mobility decreased [Unknown]
  - Bone density abnormal [Unknown]
  - Asthenia [Unknown]
  - Blood calcium decreased [Unknown]
  - Vitamin D decreased [Unknown]
  - Body height decreased [Unknown]
